FAERS Safety Report 17879786 (Version 1)
Quarter: 2020Q2

REPORT INFORMATION
  Report Type: Spontaneous
  Country: US (occurrence: US)
  Receive Date: 20200610
  Receipt Date: 20200610
  Transmission Date: 20200714
  Serious: Yes (Hospitalization)
  Sender: FDA-Public Use
  Company Number: None

PATIENT
  Age: 42 Year
  Sex: Male
  Weight: 68.9 kg

DRUGS (15)
  1. PROPOFOL. [Concomitant]
     Active Substance: PROPOFOL
     Dates: start: 20200327, end: 20200327
  2. KETAMINE [Concomitant]
     Active Substance: KETAMINE
     Dates: start: 20200327, end: 20200327
  3. LACTATED RINGERS SOLUTION [Concomitant]
     Active Substance: CALCIUM CHLORIDE\POTASSIUM CHLORIDE\SODIUM CHLORIDE\SODIUM LACTATE
     Dates: start: 20200327, end: 20200327
  4. FENTANYL. [Concomitant]
     Active Substance: FENTANYL
     Dates: start: 20200327, end: 20200327
  5. POTASSIUM CHLORIDE. [Concomitant]
     Active Substance: POTASSIUM CHLORIDE
     Dates: start: 20200327, end: 20200327
  6. DEXAMETHASONE. [Concomitant]
     Active Substance: DEXAMETHASONE
     Dates: start: 20200327, end: 20200327
  7. SUFENTANIL [Concomitant]
     Active Substance: SUFENTANIL
     Dates: start: 20200327, end: 20200327
  8. LIDOCAINE. [Concomitant]
     Active Substance: LIDOCAINE
     Dates: start: 20200327, end: 20200327
  9. UNASYN [Concomitant]
     Active Substance: AMPICILLIN SODIUM\SULBACTAM SODIUM
     Dates: start: 20200327, end: 20200327
  10. AMPICILLIN [Concomitant]
     Active Substance: AMPICILLIN
     Dates: start: 20200327, end: 20200327
  11. CALCIUM CHLORIDE. [Concomitant]
     Active Substance: CALCIUM CHLORIDE
     Dates: start: 20200327, end: 20200327
  12. NORMAL SALINE [Concomitant]
     Active Substance: SODIUM CHLORIDE
     Dates: start: 20200327, end: 20200327
  13. MIDAZOLAM. [Concomitant]
     Active Substance: MIDAZOLAM
     Dates: start: 20200327, end: 20200327
  14. PHENYLEPHRINE [Concomitant]
     Active Substance: PHENYLEPHRINE HYDROCHLORIDE
     Dates: start: 20200327, end: 20200327
  15. SEVOFLURANE. [Suspect]
     Active Substance: SEVOFLURANE
     Indication: ANAESTHESIA
     Dosage: ?          OTHER FREQUENCY:CONTINUOUS;OTHER ROUTE:INHALATION?
     Route: 055
     Dates: start: 20200327, end: 20200327

REACTIONS (4)
  - Tachycardia [None]
  - Hypercapnia [None]
  - Hyperthermia malignant [None]
  - Chills [None]

NARRATIVE: CASE EVENT DATE: 20200327
